FAERS Safety Report 20879260 (Version 1)
Quarter: 2022Q2

REPORT INFORMATION
  Report Type: Report from Study
  Country: RU (occurrence: RU)
  Receive Date: 20220526
  Receipt Date: 20220526
  Transmission Date: 20220721
  Serious: Yes (Life-Threatening, Hospitalization, Other)
  Sender: FDA-Public Use
  Company Number: RU-CELGENE-RUS-20201002865

PATIENT
  Age: 52 Year
  Sex: Male
  Weight: 82 kg

DRUGS (2)
  1. ACETAMINOPHEN\CHLORPHENIRAMINE MALEATE\PHENYLEPHRINE HYDROCHLORIDE [Concomitant]
     Active Substance: ACETAMINOPHEN\CHLORPHENIRAMINE MALEATE\PHENYLEPHRINE HYDROCHLORIDE
     Indication: Pyrexia
     Dosage: DAILY DOSE : 2 CAPSULE?TOTAL DOSE : 8 CAPSULE?UNIT DOSE : 1 CAPSULE?2 CAPSULE
     Route: 048
     Dates: start: 20201005, end: 20201009
  2. UMIFENOVIR [Concomitant]
     Active Substance: UMIFENOVIR
     Indication: Pyrexia
     Dosage: 800 MILLIGRAM
     Route: 048
     Dates: start: 20201005, end: 20201009

REACTIONS (1)
  - COVID-19 pneumonia [Recovered/Resolved]

NARRATIVE: CASE EVENT DATE: 20201009
